FAERS Safety Report 6868030-8 (Version None)
Quarter: 2010Q3

REPORT INFORMATION
  Report Type: 
  Country: None (occurrence: None)
  Receive Date: 20100722
  Receipt Date: 20100714
  Transmission Date: 20110219
  Serious: Yes (Life-Threatening, Hospitalization)
  Sender: FDA-Public Use
  Company Number: CH-WYE-G06406110

PATIENT
  Age: 20 Month
  Sex: Female
  Weight: 8 kg

DRUGS (10)
  1. TAZOBAC [Suspect]
     Indication: PNEUMONIA BACTERIAL
     Route: 042
     Dates: start: 20100528, end: 20100601
  2. TAZOBAC [Suspect]
     Indication: OFF LABEL USE
     Route: 042
     Dates: start: 20100602, end: 20100621
  3. CHLORPROMAZINE [Suspect]
     Dosage: SHORT TERM ADMINISTRATION AT UNKNOWN DOSAGE
     Route: 051
     Dates: start: 20100601, end: 20100611
  4. PHENOBARBITAL [Concomitant]
     Route: 048
     Dates: start: 20100612, end: 20100616
  5. CHLORAL HYDRATE [Concomitant]
     Dosage: DOSAGE NOT PROVIDED
     Dates: start: 20100601, end: 20100612
  6. MORPHINE [Concomitant]
     Dosage: DATES AND DOSAGE NOT PROVIDED
     Route: 051
  7. VALIUM [Suspect]
     Dosage: UNKNOWN DATES AND DOSAGE ON DEMAND
  8. VALIUM [Suspect]
     Dosage: OVERDOSE WITH 10X NORMAL DOSAGE
     Dates: start: 20100612, end: 20100612
  9. CATAPRESAN [Concomitant]
     Route: 051
     Dates: start: 20100601, end: 20100621
  10. AKINETON [Concomitant]
     Indication: EXTRAPYRAMIDAL DISORDER
     Dosage: DOSAGE NOT SPECIFIED
     Route: 051
     Dates: start: 20100611, end: 20100613

REACTIONS (8)
  - ACCIDENTAL OVERDOSE [None]
  - AGRANULOCYTOSIS [None]
  - CARDIAC FAILURE [None]
  - EXTRAPYRAMIDAL DISORDER [None]
  - NEUTROPENIA [None]
  - RESPIRATORY FAILURE [None]
  - SEDATION [None]
  - SYSTEMIC INFLAMMATORY RESPONSE SYNDROME [None]
